FAERS Safety Report 23231431 (Version 1)
Quarter: 2023Q4

REPORT INFORMATION
  Report Type: Spontaneous
  Country: US (occurrence: US)
  Receive Date: 20231127
  Receipt Date: 20231127
  Transmission Date: 20240110
  Serious: No
  Sender: FDA-Public Use
  Company Number: US-AVADEL CNS PHARMACEUTICALS, LLC-2023AVA00204

PATIENT
  Age: 32 Year
  Sex: Female

DRUGS (6)
  1. LUMRYZ [Suspect]
     Active Substance: SODIUM OXYBATE
     Indication: Narcolepsy
     Dosage: 6 G, ONCE NIGHTLY
     Dates: start: 20230918
  2. LUMRYZ [Suspect]
     Active Substance: SODIUM OXYBATE
     Indication: Cataplexy
  3. WAKIX [Concomitant]
     Active Substance: PITOLISANT HYDROCHLORIDE
     Dosage: 17.8 MG, 1X/DAY
  4. FLUTICASONE [Concomitant]
     Active Substance: FLUTICASONE
     Dosage: 0.2 MG, 1X/DAY
  5. MIDODRINE [Concomitant]
     Active Substance: MIDODRINE
     Dosage: 5 MG, 1X/DAY
  6. RIZATRIPTAN BENZOATE [Concomitant]
     Active Substance: RIZATRIPTAN BENZOATE
     Dosage: 10 MG, AS NEEDED

REACTIONS (2)
  - Nausea [Not Recovered/Not Resolved]
  - Dizziness [Recovering/Resolving]

NARRATIVE: CASE EVENT DATE: 20230919
